FAERS Safety Report 8572892-6 (Version None)
Quarter: 2012Q3

REPORT INFORMATION
  Report Type: 
  Country: None (occurrence: None)
  Receive Date: 20120806
  Receipt Date: 20120727
  Transmission Date: 20120928
  Serious: Yes (Other)
  Sender: FDA-Public Use
  Company Number: US-ASTRAZENECA-2012SE52515

PATIENT
  Age: 57 Year
  Sex: Male
  Weight: 117.9 kg

DRUGS (27)
  1. SYMBICORT [Suspect]
     Dosage: 160/4.5 MCG TWO PUFFS UNKNOWN
     Route: 055
  2. ALLOPURINOL [Concomitant]
     Indication: BLOOD URIC ACID
  3. METOPROLOL TARTRATE [Concomitant]
     Indication: CARDIAC DISORDER
  4. DENOLOPRIL [Concomitant]
     Indication: CARDIAC DISORDER
  5. FIBRE LAXATIVE [Concomitant]
     Indication: LAXATIVE SUPPORTIVE CARE
  6. DICLOFENAC SODIUM [Concomitant]
     Indication: ANTIINFLAMMATORY THERAPY
  7. DICLOFENAC SODIUM [Concomitant]
     Indication: PAIN
  8. GLIPIZIDE [Concomitant]
     Indication: DIABETES MELLITUS
  9. VITAMIN D [Concomitant]
     Indication: CARDIAC DISORDER
  10. SYMBICORT [Suspect]
     Dosage: 160/4.5 MCG TWO PUFFS UNKNOWN
     Route: 055
  11. SYMBICORT [Suspect]
     Dosage: 160/4.5 MCG ONE TO TWO PUFFS AS NEEDED
     Route: 055
  12. SYMBICORT [Suspect]
     Dosage: 160/4.5 MCG ONE TO TWO PUFFS AS NEEDED
     Route: 055
  13. CRESTOR [Suspect]
     Indication: BLOOD CHOLESTEROL
     Dosage: DAILY
     Route: 048
  14. FUROSEMIDE [Concomitant]
     Indication: DIURETIC THERAPY
  15. SYMBICORT [Suspect]
     Indication: ASTHMA
     Dosage: 160/4.5 MCG ONE PUFF TWO TIMES A DAY
     Route: 055
  16. METFORMIN HYDROCHLORIDE [Concomitant]
     Indication: DIABETES MELLITUS
  17. LANTUS [Concomitant]
     Indication: DIABETES MELLITUS
  18. PLAVIX [Concomitant]
     Indication: ANTICOAGULANT THERAPY
  19. SOMA [Concomitant]
     Indication: MUSCLE RELAXANT THERAPY
  20. SYMBICORT [Suspect]
     Indication: BRONCHITIS
     Dosage: 160/4.5 MCG ONE PUFF TWO TIMES A DAY
     Route: 055
  21. NEXIUM [Suspect]
     Indication: ABDOMINAL PAIN UPPER
     Route: 048
  22. AMBIEN [Concomitant]
     Indication: SLEEP DISORDER
  23. FISH OIL [Concomitant]
     Indication: CARDIAC DISORDER
  24. SINGULAIR [Concomitant]
     Indication: ASTHMA
  25. NEXIUM [Suspect]
     Indication: DYSPEPSIA
     Route: 048
  26. HYDROCODONE BITARTRATE [Concomitant]
     Indication: PAIN
  27. VITAMIN D [Concomitant]
     Indication: NASAL DISORDER

REACTIONS (7)
  - COUGH [None]
  - ASTHMA [None]
  - PULMONARY CONGESTION [None]
  - OFF LABEL USE [None]
  - OROPHARYNGEAL PAIN [None]
  - LOSS OF CONSCIOUSNESS [None]
  - WHEEZING [None]
